FAERS Safety Report 20095221 (Version 1)
Quarter: 2021Q4

REPORT INFORMATION
  Report Type: Spontaneous
  Country: FR (occurrence: FR)
  Receive Date: 20211122
  Receipt Date: 20211122
  Transmission Date: 20220303
  Serious: Yes (Congenital Anomaly, Other)
  Sender: FDA-Public Use
  Company Number: FR-ABBVIE-21K-056-4166188-00

PATIENT
  Sex: Male

DRUGS (1)
  1. VALPROATE SODIUM [Suspect]
     Active Substance: VALPROATE SODIUM
     Indication: Maternal exposure timing unspecified
     Route: 064

REACTIONS (43)
  - Hypospadias [Unknown]
  - Pyelocaliectasis [Unknown]
  - Knee deformity [Unknown]
  - Psychomotor skills impaired [Unknown]
  - Eyelid disorder [Unknown]
  - Inguinal hernia [Recovered/Resolved]
  - Uvula deviation [Unknown]
  - Pelvic misalignment [Unknown]
  - Cognitive disorder [Unknown]
  - Testicular disorder [Unknown]
  - Fragile X syndrome [Unknown]
  - Hydronephrosis [Unknown]
  - Foot deformity [Unknown]
  - Foetal vascular malperfusion [Unknown]
  - Placental infarction [Unknown]
  - Necrosis ischaemic [Unknown]
  - Cryptorchism [Unknown]
  - Enuresis [Recovered/Resolved]
  - Rhinitis [Unknown]
  - Bronchiolitis [Unknown]
  - Tracheitis [Unknown]
  - Cough [Unknown]
  - Angina pectoris [Unknown]
  - Nasopharyngitis [Unknown]
  - Premature baby [Unknown]
  - Cough [Unknown]
  - Vomiting [Unknown]
  - Speech disorder developmental [Unknown]
  - Educational problem [Unknown]
  - Motor developmental delay [Unknown]
  - Language disorder [Unknown]
  - Cognitive disorder [Unknown]
  - Fatigue [Unknown]
  - Akathisia [Unknown]
  - Impulsive behaviour [Unknown]
  - Overweight [Unknown]
  - Knee deformity [Unknown]
  - Lip disorder [Unknown]
  - Hypotonia [Unknown]
  - Hypospadias [Unknown]
  - Unevaluable event [Unknown]
  - Speech disorder developmental [Unknown]
  - Foetal exposure during pregnancy [Unknown]

NARRATIVE: CASE EVENT DATE: 20050519
